FAERS Safety Report 16208773 (Version 2)
Quarter: 2019Q2

REPORT INFORMATION
  Report Type: Spontaneous
  Country: FR (occurrence: FR)
  Receive Date: 20190417
  Receipt Date: 20190426
  Transmission Date: 20190711
  Serious: Yes (Other)
  Sender: FDA-Public Use
  Company Number: FR-PFIZER INC-2019164176

PATIENT
  Age: 67 Year
  Sex: Male

DRUGS (2)
  1. DALACINE [CLINDAMYCIN PALMITATE HYDROCHLORIDE] [Suspect]
     Active Substance: CLINDAMYCIN PALMITATE HYDROCHLORIDE
     Indication: SEPSIS
     Dosage: 1800 MG, QD
     Route: 042
     Dates: start: 20190205, end: 20190208
  2. CORDARONE [Suspect]
     Active Substance: AMIODARONE HYDROCHLORIDE
     Dosage: 4 DF, QD
     Route: 042
     Dates: start: 20190204, end: 20190208

REACTIONS (1)
  - Mixed liver injury [Unknown]

NARRATIVE: CASE EVENT DATE: 20190207
